FAERS Safety Report 13183793 (Version 11)
Quarter: 2018Q4

REPORT INFORMATION
  Report Type: Report from Study
  Country: JP (occurrence: JP)
  Receive Date: 20170203
  Receipt Date: 20181029
  Transmission Date: 20190204
  Serious: Yes (Hospitalization)
  Sender: FDA-Public Use
  Company Number: JP-ROCHE-1886717

PATIENT
  Age: 53 Year
  Sex: Male
  Weight: 59.9 kg

DRUGS (38)
  1. ATEZOLIZUMAB. [Suspect]
     Active Substance: ATEZOLIZUMAB
     Indication: NON-SMALL CELL LUNG CANCER STAGE IV
     Dosage: MOST RECENT DOSE ON 17/JAN/2017?PER PROTOCOL
     Route: 042
     Dates: start: 20170117
  2. CALONAL [Concomitant]
     Active Substance: ACETAMINOPHEN
     Indication: CANCER PAIN
     Route: 065
     Dates: start: 20161111, end: 20170202
  3. HEPARINOID [Concomitant]
     Active Substance: CHONDROITIN SULFATE (BOVINE)
     Indication: RADIATION SKIN INJURY
     Route: 065
     Dates: start: 20170104, end: 20170111
  4. MANNITOL. [Concomitant]
     Active Substance: MANNITOL
     Indication: PROPHYLAXIS
     Route: 065
     Dates: start: 20170117, end: 20170117
  5. HUMULIN R [Concomitant]
     Active Substance: INSULIN HUMAN
     Indication: HYPERGLYCAEMIA
     Route: 065
     Dates: start: 20170131
  6. TAZOPIPE [Concomitant]
     Active Substance: PIPERACILLIN SODIUM\TAZOBACTAM SODIUM
     Indication: INFECTION PROPHYLAXIS
     Route: 065
     Dates: start: 20170202, end: 20170210
  7. INOVAN (JAPAN) [Concomitant]
     Indication: CARDIAC FAILURE
     Route: 065
     Dates: start: 20170202, end: 20170207
  8. VEEN-D [Concomitant]
     Active Substance: DEXTROSE
     Indication: CARDIAC FAILURE
     Route: 065
     Dates: start: 20170203, end: 20170212
  9. DIGOSIN [Concomitant]
     Active Substance: DIGOXIN
     Indication: CARDIAC FAILURE
     Route: 065
     Dates: start: 20170205, end: 20180207
  10. CISPLATIN. [Suspect]
     Active Substance: CISPLATIN
     Indication: NON-SMALL CELL LUNG CANCER STAGE IV
     Dosage: MOST RECENT DOSE 129 MG ON 17/JAN/2017?FIXED DOSE PER PROTOCOL
     Route: 042
     Dates: start: 20170117
  11. DECADRON [Concomitant]
     Active Substance: DEXAMETHASONE
     Route: 065
     Dates: start: 20170118, end: 20170119
  12. FENTOS (JAPAN) [Concomitant]
     Active Substance: FENTANYL
     Indication: CANCER PAIN
     Route: 065
     Dates: start: 20170130, end: 20170203
  13. PRIMPERAN [Concomitant]
     Active Substance: METOCLOPRAMIDE HYDROCHLORIDE
     Indication: NAUSEA
     Route: 065
     Dates: start: 20170130, end: 20170130
  14. BAKTAR [Concomitant]
     Active Substance: SULFAMETHOXAZOLE\TRIMETHOPRIM
     Indication: INFECTION PROPHYLAXIS
     Route: 065
     Dates: start: 20170201, end: 20170202
  15. KCL [Concomitant]
     Active Substance: POTASSIUM CHLORIDE
     Indication: CARDIAC FAILURE
     Route: 065
     Dates: start: 20170211, end: 20170215
  16. OXINORM (JAPAN) [Concomitant]
     Active Substance: OXYCODONE HYDROCHLORIDE
     Indication: CANCER PAIN
     Route: 065
     Dates: start: 20161118, end: 20170129
  17. MAGNESIUM SULFATE. [Concomitant]
     Active Substance: MAGNESIUM SULFATE
     Indication: PROPHYLAXIS
     Route: 065
     Dates: start: 20170117, end: 20170117
  18. WHITE PETROLATUM [Concomitant]
     Active Substance: PETROLATUM
     Indication: DRY MOUTH
     Route: 065
     Dates: start: 20170131, end: 20170207
  19. XYLOCAINE [Concomitant]
     Active Substance: LIDOCAINE HYDROCHLORIDE
     Indication: STOMATITIS
     Route: 065
     Dates: start: 20170206, end: 20170213
  20. AZULENE [Concomitant]
     Active Substance: AZULENE
     Indication: STOMATITIS
     Route: 065
     Dates: start: 20170206, end: 20170213
  21. VEEN-F [Concomitant]
     Active Substance: CALCIUM CHLORIDE\MAGNESIUM CHLORIDE\POTASSIUM CHLORIDE\SODIUM ACETATE\SODIUM CHLORIDE
     Indication: PROPHYLAXIS
     Route: 065
     Dates: start: 20170213, end: 20170215
  22. OXYCONTIN [Concomitant]
     Active Substance: OXYCODONE HYDROCHLORIDE
     Indication: CANCER PAIN
     Route: 065
     Dates: start: 20161209, end: 20170130
  23. MAGMITT [Concomitant]
     Active Substance: MAGNESIUM OXIDE
     Indication: CONSTIPATION
     Route: 065
     Dates: start: 20161218, end: 20170202
  24. DEXART [Concomitant]
     Active Substance: DEXAMETHASONE SODIUM PHOSPHATE
     Route: 065
     Dates: start: 20170117, end: 20170117
  25. NEXIUM [Concomitant]
     Active Substance: ESOMEPRAZOLE MAGNESIUM
     Indication: GASTRITIS PROPHYLAXIS
     Route: 065
     Dates: start: 20170127, end: 20170130
  26. OMEPRAZOLE. [Concomitant]
     Active Substance: OMEPRAZOLE
     Indication: PROPHYLAXIS OF NAUSEA AND VOMITING
     Route: 065
     Dates: start: 20170131, end: 20170213
  27. PEMETREXED. [Suspect]
     Active Substance: PEMETREXED
     Indication: NON-SMALL CELL LUNG CANCER STAGE IV
     Dosage: MOST RECENT DOSE 865 MG ON 17/JAN/2017?FIXED DOSE PER PROTOCOL
     Route: 042
     Dates: start: 20170117
  28. PROEMEND [Concomitant]
     Active Substance: FOSAPREPITANT
     Indication: PROPHYLAXIS OF NAUSEA AND VOMITING
     Route: 065
     Dates: start: 20170117, end: 20170117
  29. NORADRENALIN [Concomitant]
     Active Substance: NOREPINEPHRINE\NOREPINEPHRINE BITARTRATE
     Indication: CARDIAC FAILURE
     Route: 065
     Dates: start: 20170202, end: 20170202
  30. VEEN-F [Concomitant]
     Active Substance: CALCIUM CHLORIDE\MAGNESIUM CHLORIDE\POTASSIUM CHLORIDE\SODIUM ACETATE\SODIUM CHLORIDE
     Indication: CYTOKINE RELEASE SYNDROME
     Route: 065
     Dates: start: 20170130, end: 20170202
  31. VEEN-F [Concomitant]
     Active Substance: CALCIUM CHLORIDE\MAGNESIUM CHLORIDE\POTASSIUM CHLORIDE\SODIUM ACETATE\SODIUM CHLORIDE
     Route: 065
     Dates: start: 20170117, end: 20170117
  32. LYRICA [Concomitant]
     Active Substance: PREGABALIN
     Indication: CANCER PAIN
     Route: 065
     Dates: start: 20161216, end: 20170129
  33. ALOXI [Concomitant]
     Active Substance: PALONOSETRON HYDROCHLORIDE
     Indication: PROPHYLAXIS
     Route: 065
     Dates: start: 20170117, end: 20170117
  34. POLARAMINE [Concomitant]
     Active Substance: DEXCHLORPHENIRAMINE MALEATE
     Indication: PROPHYLAXIS
     Route: 065
     Dates: start: 20170131, end: 20170131
  35. VITAMEDIN (JAPAN) [Concomitant]
     Route: 065
     Dates: start: 20170202, end: 20170212
  36. SENNOSIDE [Concomitant]
     Active Substance: SENNOSIDES
     Indication: CONSTIPATION
     Route: 065
     Dates: start: 20170219, end: 20170219
  37. AZUNOL [Concomitant]
     Active Substance: SODIUM GUALENATE
     Indication: DECUBITUS ULCER
     Route: 065
     Dates: start: 20170220, end: 20170311
  38. AMITIZA [Concomitant]
     Active Substance: LUBIPROSTONE
     Indication: CONSTIPATION
     Route: 065
     Dates: start: 20170220, end: 20170220

REACTIONS (1)
  - Cytokine release syndrome [Recovered/Resolved]

NARRATIVE: CASE EVENT DATE: 20170124
